FAERS Safety Report 16548681 (Version 1)
Quarter: 2019Q3

REPORT INFORMATION
  Report Type: Spontaneous
  Country: DE (occurrence: DE)
  Receive Date: 20190709
  Receipt Date: 20190709
  Transmission Date: 20191004
  Serious: Yes (Hospitalization, Other)
  Sender: FDA-Public Use
  Company Number: DE-PFIZER INC-HQWYE636226OCT06

PATIENT
  Age: 73 Year
  Sex: Female

DRUGS (17)
  1. LOMIR(ISRADIPINE) [Interacting]
     Active Substance: ISRADIPINE
     Indication: ESSENTIAL HYPERTENSION
     Dosage: UNK
     Route: 065
     Dates: start: 1994, end: 200512
  2. LISINOPRIL. [Interacting]
     Active Substance: LISINOPRIL
     Indication: ESSENTIAL HYPERTENSION
     Dosage: 20 MG, UNK
     Route: 048
     Dates: start: 200604
  3. LISINOPRIL. [Interacting]
     Active Substance: LISINOPRIL
     Indication: MYOCARDIAL INFARCTION
  4. CALCIUM PHOSPHATE, CALCIUM SODIUM LACTATE, ERGOCALCIFEROL [Interacting]
     Active Substance: CALCIUM LACTATE\CALCIUM PHOSPHATE\ERGOCALCIFEROL
     Indication: OSTEOPOROSIS
     Dosage: UNK
     Route: 048
  5. NIFEDIPINE. [Interacting]
     Active Substance: NIFEDIPINE
     Dosage: UNK
     Route: 065
  6. ENALAPRIL [Interacting]
     Active Substance: ENALAPRIL
     Dosage: UNK
     Route: 065
  7. ACETYLSALICYLIC ACID [Interacting]
     Active Substance: ASPIRIN
     Indication: ARTERIOSCLEROSIS
     Dosage: 100 MG, 1X/DAY
     Route: 048
     Dates: start: 1986
  8. BISOPROLOL [Interacting]
     Active Substance: BISOPROLOL
     Dosage: 5 MG, 1X/DAY
     Route: 048
     Dates: start: 1999
  9. TORASEMIDE [Interacting]
     Active Substance: TORSEMIDE
     Indication: ESSENTIAL HYPERTENSION
     Dosage: 5 MG, 1X/DAY
     Route: 048
     Dates: start: 200604
  10. LACTULOSE. [Interacting]
     Active Substance: LACTULOSE
     Indication: CONSTIPATION
     Dosage: UNK
     Route: 048
     Dates: start: 200605
  11. LOMIR(ISRADIPINE) [Interacting]
     Active Substance: ISRADIPINE
     Dosage: 5 MG, 1X/DAY
     Route: 048
     Dates: start: 20060518
  12. PALLADONE [Interacting]
     Active Substance: HYDROMORPHONE HYDROCHLORIDE
     Indication: PAIN
     Dosage: 4 MG, UNK
     Route: 048
     Dates: start: 200605
  13. STRONTIUM RANELATE [Interacting]
     Active Substance: STRONTIUM RANELATE
     Indication: OSTEOPOROSIS
     Dosage: 2 G, 1X/DAY
     Route: 048
  14. MOXONIDINE [Interacting]
     Active Substance: MOXONIDINE
     Indication: ESSENTIAL HYPERTENSION
     Dosage: 0.3 MG, 1X/DAY
     Route: 048
     Dates: start: 200412
  15. PANTOZOL [Suspect]
     Active Substance: PANTOPRAZOLE SODIUM
     Indication: GASTROOESOPHAGEAL REFLUX DISEASE
     Dosage: 20 MG, UNK
     Route: 048
     Dates: start: 1999
  16. OPIPRAMOL [Interacting]
     Active Substance: OPIPRAMOL
     Indication: DEPRESSION
     Dosage: 50 MG, 1X/DAY
     Route: 048
     Dates: start: 200512
  17. HYDROCHLOROTHIAZIDE. [Interacting]
     Active Substance: HYDROCHLOROTHIAZIDE
     Indication: MYOCARDIAL INFARCTION
     Dosage: UNK
     Route: 048
     Dates: start: 200604

REACTIONS (6)
  - Face oedema [Recovered/Resolved]
  - Cerebrovascular accident [Unknown]
  - Drug interaction [Unknown]
  - Blood pressure inadequately controlled [Unknown]
  - Burning sensation [Recovered/Resolved]
  - Flushing [Recovered/Resolved]

NARRATIVE: CASE EVENT DATE: 200412
